FAERS Safety Report 5956129-X (Version None)
Quarter: 2008Q4

REPORT INFORMATION
  Report Type: 
  Country: None (occurrence: None)
  Receive Date: 20081112
  Receipt Date: 20081106
  Transmission Date: 20090506
  Serious: No
  Sender: FDA-Public Use
  Company Number: APP200801094

PATIENT
  Age: 45 Year
  Sex: Male

DRUGS (10)
  1. HEPARIN SODIUM INJECTION [Suspect]
     Indication: HAEMODIALYSIS
     Dosage: 3000 USP UNITS, WITH HEMODIALYSIS, INTRAVENOUS
     Route: 042
     Dates: start: 20080101, end: 20081105
  2. DIALYZER, TYPE UNKNOWN [Suspect]
     Indication: HAEMODIALYSIS
  3. MULTIVITAMIN(VIGRAN) [Concomitant]
  4. RENAGEL [Concomitant]
  5. SODIUM BICARBONATE IN PLASTIC CONTAINER [Concomitant]
  6. DIGOXIN [Concomitant]
  7. FLECAINIDE ACETATE [Concomitant]
  8. CATAPRES [Concomitant]
  9. PREVACID [Concomitant]
  10. ASPIRIN [Concomitant]

REACTIONS (10)
  - BLOOD PRESSURE ABNORMAL [None]
  - CHEST DISCOMFORT [None]
  - CHILLS [None]
  - DYSPHAGIA [None]
  - HEADACHE [None]
  - HYPERSENSITIVITY [None]
  - NAUSEA [None]
  - PROCEDURAL COMPLICATION [None]
  - PRODUCT QUALITY ISSUE [None]
  - RASH [None]
